FAERS Safety Report 11189995 (Version 2)
Quarter: 2015Q3

REPORT INFORMATION
  Report Type: Spontaneous
  Country: US (occurrence: US)
  Receive Date: 20150615
  Receipt Date: 20150824
  Transmission Date: 20151125
  Serious: No
  Sender: FDA-Public Use
  Company Number: US-PFIZER INC-2015197377

PATIENT
  Age: 57 Year
  Sex: Female
  Weight: 78 kg

DRUGS (1)
  1. MORPHINE SULFATE. [Suspect]
     Active Substance: MORPHINE SULFATE
     Indication: PAIN
     Dosage: UNK
     Dates: start: 2009

REACTIONS (1)
  - Drug ineffective [Unknown]
